FAERS Safety Report 23672024 (Version 1)
Quarter: 2024Q1

REPORT INFORMATION
  Report Type: Spontaneous
  Country: GB (occurrence: GB)
  Receive Date: 20240326
  Receipt Date: 20240326
  Transmission Date: 20240409
  Serious: Yes (Other)
  Sender: FDA-Public Use
  Company Number: GB-MHRA-ADR 28597010

PATIENT
  Age: 21 Year
  Sex: Female
  Weight: 69 kg

DRUGS (2)
  1. FLUOXETINE [Suspect]
     Active Substance: FLUOXETINE HYDROCHLORIDE
     Indication: Anxiety
     Dosage: 10 MILLIGRAM
     Route: 048
  2. ETHINYL ESTRADIOL\LEVONORGESTREL [Concomitant]
     Active Substance: ETHINYL ESTRADIOL\LEVONORGESTREL
     Indication: Product used for unknown indication
     Dosage: UNK
     Route: 065
     Dates: start: 20240117

REACTIONS (1)
  - Hallucination [Recovered/Resolved]

NARRATIVE: CASE EVENT DATE: 20240117
